FAERS Safety Report 11552087 (Version 1)
Quarter: 2015Q3

REPORT INFORMATION
  Report Type: Spontaneous
  Country: US (occurrence: US)
  Receive Date: 20150903
  Receipt Date: 20150903
  Transmission Date: 20151125
  Serious: No
  Sender: FDA-Public Use
  Company Number: US-ELI_LILLY_AND_COMPANY-US201006005103

PATIENT
  Age: 54 Year
  Sex: Male

DRUGS (3)
  1. LANTUS [Concomitant]
     Active Substance: INSULIN GLARGINE
  2. HUMALOG [Suspect]
     Active Substance: INSULIN LISPRO
  3. HUMALOG [Suspect]
     Active Substance: INSULIN LISPRO
     Dosage: UNK, AS NEEDED

REACTIONS (8)
  - Cough [Unknown]
  - Blood glucose decreased [Unknown]
  - Upper respiratory tract congestion [Unknown]
  - Incorrect dose administered [Unknown]
  - Gluten sensitivity [Unknown]
  - Abdominal distension [Unknown]
  - Infection [Unknown]
  - Infection [Unknown]

NARRATIVE: CASE EVENT DATE: 20080616
